FAERS Safety Report 11944912 (Version 6)
Quarter: 2019Q3

REPORT INFORMATION
  Report Type: Spontaneous
  Country: US (occurrence: US)
  Receive Date: 20160125
  Receipt Date: 20190709
  Transmission Date: 20191004
  Serious: No
  Sender: FDA-Public Use
  Company Number: US-PFIZER INC-2016036392

PATIENT
  Age: 72 Year
  Sex: Female

DRUGS (8)
  1. LYRICA [Suspect]
     Active Substance: PREGABALIN
     Dosage: 50 MG, 2X/DAY (ONCE IN THE MORNING , ONCE IN THE AFTERRNOON DAILY)
     Route: 048
  2. LYRICA [Suspect]
     Active Substance: PREGABALIN
     Dosage: 300 MG, UNK
  3. LYRICA [Suspect]
     Active Substance: PREGABALIN
     Dosage: UNK (DOSE WAS DECREASED TO CURRENT DOSAGE)
  4. LYRICA [Suspect]
     Active Substance: PREGABALIN
     Dosage: UNK
     Dates: end: 20181224
  5. LYRICA [Suspect]
     Active Substance: PREGABALIN
     Dosage: UNK (AN EXTRA 50 MG CAPSULE OVER WHAT WAS PRESCRIBED)
  6. LYRICA [Suspect]
     Active Substance: PREGABALIN
     Dosage: 400 MG, DAILY (300 MG AT NIGHT/100 MG IN THE MORNING)
  7. LYRICA [Suspect]
     Active Substance: PREGABALIN
     Indication: PAIN
     Dosage: UNK
  8. LYRICA [Suspect]
     Active Substance: PREGABALIN
     Indication: NEURALGIA
     Dosage: UNK (LOWER DOSE)

REACTIONS (6)
  - Feeling hot [Unknown]
  - Tremor [Unknown]
  - Intentional product use issue [Unknown]
  - Pain [Unknown]
  - Drug ineffective [Unknown]
  - Pain in extremity [Unknown]

NARRATIVE: CASE EVENT DATE: 20160129
